FAERS Safety Report 5958840-3 (Version None)
Quarter: 2008Q4

REPORT INFORMATION
  Report Type: 
  Country: None (occurrence: None)
  Receive Date: 20081117
  Receipt Date: 20081103
  Transmission Date: 20090506
  Serious: Yes (Hospitalization)
  Sender: FDA-Public Use
  Company Number: 310004M08AUS

PATIENT
  Age: 41 Year
  Sex: Female

DRUGS (1)
  1. GONAL-F [Suspect]
     Indication: ASSISTED FERTILISATION
     Dosage: 225 IU
     Dates: start: 20080911, end: 20080912

REACTIONS (2)
  - ANAPHYLACTIC REACTION [None]
  - ANGIOEDEMA [None]
